FAERS Safety Report 13299192 (Version 1)
Quarter: 2017Q1

REPORT INFORMATION
  Report Type: Spontaneous
  Country: US (occurrence: US)
  Receive Date: 20170306
  Receipt Date: 20170306
  Transmission Date: 20170428
  Serious: No
  Sender: FDA-Public Use
  Company Number: US-BAYER-2017-034891

PATIENT
  Age: 1 Year
  Sex: Female
  Weight: 36.29 kg

DRUGS (1)
  1. MIRALAX [Suspect]
     Active Substance: POLYETHYLENE GLYCOL 3350
     Indication: CONSTIPATION
     Dosage: UNK,CAPFUL ONCE DAILY DISSOLVED IN DRINK, LATER REDUCED AMOUNT
     Dates: start: 200811

REACTIONS (1)
  - Neuropsychiatric symptoms [Recovered/Resolved]

NARRATIVE: CASE EVENT DATE: 200811
